FAERS Safety Report 19116503 (Version 1)
Quarter: 2021Q2

REPORT INFORMATION
  Report Type: Report from Study
  Country: IT (occurrence: IT)
  Receive Date: 20210409
  Receipt Date: 20210409
  Transmission Date: 20210717
  Serious: Yes (Other)
  Sender: FDA-Public Use
  Company Number: IT-GLAXOSMITHKLINE-IT2021073956

PATIENT
  Age: 1 Year
  Sex: Male

DRUGS (1)
  1. MENINGOCOCCAL B RECOM VACCINE + ALOH + OMV [Suspect]
     Active Substance: MENINGOCOCCAL GROUP B VACCINE
     Indication: PROPHYLAXIS
     Dosage: 1 DF
     Route: 030
     Dates: start: 20210308

REACTIONS (1)
  - Diarrhoea [Recovered/Resolved]

NARRATIVE: CASE EVENT DATE: 20210308
